FAERS Safety Report 7348604-0 (Version None)
Quarter: 2011Q1

REPORT INFORMATION
  Report Type: 
  Country: None (occurrence: None)
  Receive Date: 20110314
  Receipt Date: 20110304
  Transmission Date: 20110831
  Serious: No
  Sender: FDA-Public Use
  Company Number: US-BIOGENIDEC-2010BI041073

PATIENT
  Age: 41 Year
  Sex: Male

DRUGS (1)
  1. TYSABRI [Suspect]
     Indication: MULTIPLE SCLEROSIS
     Route: 042
     Dates: start: 20101028

REACTIONS (12)
  - COORDINATION ABNORMAL [None]
  - MUSCLE SPASMS [None]
  - FATIGUE [None]
  - MOBILITY DECREASED [None]
  - ASTHENIA [None]
  - SINUSITIS [None]
  - PERIPHERAL PARALYSIS [None]
  - INCREASED UPPER AIRWAY SECRETION [None]
  - NASOPHARYNGITIS [None]
  - WHEEZING [None]
  - DYSGRAPHIA [None]
  - HYPOAESTHESIA [None]
